FAERS Safety Report 11516270 (Version 1)
Quarter: 2015Q3

REPORT INFORMATION
  Report Type: Spontaneous
  Country: US (occurrence: None)
  Receive Date: 20150914
  Receipt Date: 20150914
  Transmission Date: 20151125
  Serious: Yes (Other)
  Sender: FDA-Public Use
  Company Number: 2013-003676

PATIENT
  Sex: Female

DRUGS (1)
  1. MINASTRIN 24 FE [Suspect]
     Active Substance: ETHINYL ESTRADIOL\NORETHINDRONE ACETATE
     Indication: CONTRACEPTION
     Route: 048

REACTIONS (11)
  - Anxiety [None]
  - Depression [None]
  - Suicidal ideation [None]
  - Abdominal pain [None]
  - Tearfulness [None]
  - Abdominal distension [None]
  - Weight increased [None]
  - Loss of libido [None]
  - Menstruation irregular [None]
  - Mood altered [None]
  - Breast tenderness [None]
